FAERS Safety Report 6330001-8 (Version None)
Quarter: 2009Q3

REPORT INFORMATION
  Report Type: 
  Country: None (occurrence: None)
  Receive Date: 20090825
  Receipt Date: 20090814
  Transmission Date: 20100115
  Serious: Yes (Death)
  Sender: FDA-Public Use
  Company Number: 087-50794-09080811

PATIENT
  Age: 68 Year
  Sex: Male

DRUGS (11)
  1. VIDAZA [Suspect]
     Indication: MYELODYSPLASTIC SYNDROME
     Dosage: SEE IMAGE
     Route: 042
     Dates: start: 20090525, end: 20090531
  2. VIDAZA [Suspect]
     Indication: MYELODYSPLASTIC SYNDROME
     Dosage: SEE IMAGE
     Route: 042
     Dates: start: 20090708, end: 20090714
  3. FULCALIQ 2 (FULCALIQ) [Concomitant]
  4. ELEMENMIC (ELEMENMIC) [Concomitant]
  5. INTRALIPOS (SOYA OIL) [Concomitant]
  6. HUMULIN R [Concomitant]
  7. SLOW-K [Concomitant]
  8. ACETAMINOPHEN [Concomitant]
  9. NITRODERM [Concomitant]
  10. KCL CORRECTIVE (POTASSIUM CHLORIDE) [Concomitant]
  11. CHLOR-TRIMETON [Concomitant]

REACTIONS (9)
  - BLOOD POTASSIUM DECREASED [None]
  - GASTROINTESTINAL INFECTION [None]
  - HYPOALBUMINAEMIA [None]
  - HYPOPROTEINAEMIA [None]
  - HYPOXIA [None]
  - PLATELET COUNT DECREASED [None]
  - RED BLOOD CELL COUNT DECREASED [None]
  - SHOCK [None]
  - WHITE BLOOD CELL COUNT DECREASED [None]
